FAERS Safety Report 21261667 (Version 2)
Quarter: 2022Q3

REPORT INFORMATION
  Report Type: Spontaneous
  Country: US (occurrence: US)
  Receive Date: 20220827
  Receipt Date: 20220909
  Transmission Date: 20221026
  Serious: No
  Sender: FDA-Public Use
  Company Number: US-NOVARTISTESTPH-NVSC2022US192441

PATIENT
  Sex: Female

DRUGS (1)
  1. AFINITOR [Suspect]
     Active Substance: EVEROLIMUS
     Indication: Product used for unknown indication
     Dosage: 7.5 MG, QD, (TAKING THE PRODUCT FOR ROUGHLY FOR WELL OVER 10 AND 12 YEARS)
     Route: 065

REACTIONS (4)
  - Lipids abnormal [Unknown]
  - Infection [Unknown]
  - Pyrexia [Unknown]
  - Blood cholesterol increased [Unknown]
